FAERS Safety Report 7307968-4 (Version None)
Quarter: 2011Q1

REPORT INFORMATION
  Report Type: 
  Country: None (occurrence: None)
  Receive Date: 20110223
  Receipt Date: 20110215
  Transmission Date: 20110831
  Serious: Yes (Other)
  Sender: FDA-Public Use
  Company Number: US-BAYER-2011-009952

PATIENT
  Sex: Female

DRUGS (3)
  1. SORAFENIB (RAF KINASE INHIBITOR) [Suspect]
     Indication: HEPATIC NEOPLASM MALIGNANT
     Dosage: 200 MG, QOD
     Route: 048
     Dates: start: 20110116, end: 20110119
  2. NORVASC [Concomitant]
     Indication: PRODUCT USED FOR UNKNOWN INDICATION
     Dosage: UNK
  3. SORAFENIB (RAF KINASE INHIBITOR) [Suspect]
     Dosage: 200 MG, QOD
     Route: 048
     Dates: start: 20110122

REACTIONS (6)
  - HEART RATE INCREASED [None]
  - MUSCLE SPASMS [None]
  - BLOOD PRESSURE INCREASED [None]
  - DIZZINESS [None]
  - DIARRHOEA [None]
  - FEELING ABNORMAL [None]
